FAERS Safety Report 5805608-4 (Version None)
Quarter: 2008Q3

REPORT INFORMATION
  Report Type: 
  Country: None (occurrence: None)
  Receive Date: 20080708
  Receipt Date: 20080708
  Transmission Date: 20090109
  Serious: Yes (Other)
  Sender: FDA-Public Use
  Company Number: None

PATIENT
  Age: 22 Year
  Sex: Female
  Weight: 49.8957 kg

DRUGS (1)
  1. YAZ [Suspect]
     Indication: ORAL CONTRACEPTION
     Dosage: 1 PILL ONCE DAILY PO
     Route: 048
     Dates: start: 20080101, end: 20080601

REACTIONS (7)
  - ANGER [None]
  - DEPRESSION [None]
  - JUDGEMENT IMPAIRED [None]
  - MOOD ALTERED [None]
  - MOOD SWINGS [None]
  - SELF-INJURIOUS IDEATION [None]
  - SUICIDAL IDEATION [None]
